FAERS Safety Report 25547371 (Version 2)
Quarter: 2025Q3

REPORT INFORMATION
  Report Type: Report from Study
  Country: CA (occurrence: CA)
  Receive Date: 20250714
  Receipt Date: 20250721
  Transmission Date: 20251020
  Serious: Yes (Hospitalization)
  Sender: ALEXION PHARMACEUTICALS
  Company Number: CA-AstraZeneca-CH-00908141A

PATIENT
  Age: 21 Year
  Sex: Female

DRUGS (18)
  1. SOLIRIS [Suspect]
     Active Substance: ECULIZUMAB
     Indication: Atypical haemolytic uraemic syndrome
     Dosage: 900 MILLIGRAM, QW
     Dates: start: 20230924, end: 20230929
  2. SOLIRIS [Suspect]
     Active Substance: ECULIZUMAB
     Dosage: 1200 MILLIGRAM, QW
     Dates: start: 20231006, end: 20240127
  3. SOLIRIS [Suspect]
     Active Substance: ECULIZUMAB
     Dosage: 900 MILLIGRAM, QW
     Dates: start: 20240201, end: 20240215
  4. SOLIRIS [Suspect]
     Active Substance: ECULIZUMAB
     Dosage: 1200 MILLIGRAM, QW
     Dates: start: 20240229
  5. SOLIRIS [Suspect]
     Active Substance: ECULIZUMAB
     Dosage: 1200 MILLIGRAM, Q2W
     Dates: start: 20240509, end: 202405
  6. ACETAMINOPHEN [Concomitant]
     Active Substance: ACETAMINOPHEN
     Dosage: 650 MILLIGRAM, Q4H, PRN
  7. FOSAVANCE [Concomitant]
     Active Substance: ALENDRONATE SODIUM\CHOLECALCIFEROL
     Dosage: UNK, 70 MG- 5,600 UNIT PER TABLET QW
  8. CARVEDILOL [Concomitant]
     Active Substance: CARVEDILOL
     Dosage: 25 MILLIGRAM, BID
  9. DALTEPARIN [Concomitant]
     Active Substance: DALTEPARIN
     Dosage: UNK, 2,500 UNITS TIW
  10. DILTIAZEM [Concomitant]
     Active Substance: DILTIAZEM
     Dosage: 360 MILLIGRAM, QD
  11. FUROSEMIDE [Concomitant]
     Active Substance: FUROSEMIDE
     Dosage: 80 MILLIGRAM, QD
  12. HYDROXYCHLOROQUINE [Concomitant]
     Active Substance: HYDROXYCHLOROQUINE
     Dosage: 200 MILLIGRAM, QD
  13. IRBESARTAN [Concomitant]
     Active Substance: IRBESARTAN
     Dosage: 300 MILLIGRAM, QD
  14. MYFORTIC [Concomitant]
     Active Substance: MYCOPHENOLATE SODIUM
     Dosage: 360 MILLIGRAM, BID
  15. NIFEDIPINE [Concomitant]
     Active Substance: NIFEDIPINE
     Dosage: 30 MILLIGRAM, TIW
  16. PANTOPRAZOLE SODIUM [Concomitant]
     Active Substance: PANTOPRAZOLE SODIUM
     Dosage: 40 MILLIGRAM, QD
  17. PREDNISONE [Concomitant]
     Active Substance: PREDNISONE
     Dosage: 4 MILLIGRAM, QD
  18. SEPTRA [Concomitant]
     Active Substance: SULFAMETHOXAZOLE\TRIMETHOPRIM
     Dosage: UNK, 400-80 MG PER TABLET  TIW

REACTIONS (11)
  - Pyrexia [Unknown]
  - Chills [Unknown]
  - Cough [Unknown]
  - Pneumonia bacterial [Unknown]
  - Rhinovirus infection [Unknown]
  - Hypogammaglobulinaemia [Unknown]
  - Focal segmental glomerulosclerosis [Unknown]
  - Blood creatinine increased [Unknown]
  - Glomerular filtration rate decreased [Unknown]
  - Haemoglobin decreased [Unknown]
  - Anogenital warts [Unknown]

NARRATIVE: CASE EVENT DATE: 20240101
